FAERS Safety Report 7261984-X (Version None)
Quarter: 2011Q1

REPORT INFORMATION
  Report Type: 
  Country: None (occurrence: None)
  Receive Date: 20110130
  Receipt Date: 20101214
  Transmission Date: 20110831
  Serious: No
  Sender: FDA-Public Use
  Company Number: US-ABBOTT-10P-163-0691344-00

PATIENT
  Sex: Female
  Weight: 45.4 kg

DRUGS (3)
  1. DALMANE [Concomitant]
     Indication: INSOMNIA
  2. ZETIA [Concomitant]
     Indication: BLOOD CHOLESTEROL INCREASED
  3. HUMIRA [Suspect]
     Indication: PSORIASIS
     Dates: start: 20101029, end: 20101207

REACTIONS (1)
  - PSORIASIS [None]
